APPROVED DRUG PRODUCT: FASLODEX
Active Ingredient: FULVESTRANT
Strength: 250MG/5ML (50MG/ML)
Dosage Form/Route: SOLUTION;INTRAMUSCULAR
Application: N021344 | Product #001 | TE Code: AO
Applicant: ASTRAZENECA PHARMACEUTICALS LP
Approved: Apr 25, 2002 | RLD: Yes | RS: Yes | Type: RX